FAERS Safety Report 5468662-8 (Version None)
Quarter: 2007Q3

REPORT INFORMATION
  Report Type: 
  Country: None (occurrence: None)
  Receive Date: 20070921
  Receipt Date: 20070910
  Transmission Date: 20080115
  Serious: Yes (Other)
  Sender: FDA-Public Use
  Company Number: S07-ITA-05098-01

PATIENT
  Age: 92 Year
  Sex: Female

DRUGS (6)
  1. MEMANTINE HCL [Suspect]
     Indication: DEMENTIA
     Dosage: 10 MG QD PO
     Route: 048
     Dates: start: 20060801, end: 20060816
  2. DIGOXIN [Concomitant]
  3. LISINOPRIL [Concomitant]
  4. TIAPRIDE [Concomitant]
  5. ALPRAZOLAM [Concomitant]
  6. PROMAZINE HYDROCHLORIDE [Concomitant]

REACTIONS (2)
  - DRUG INTERACTION [None]
  - HEPATITIS CHOLESTATIC [None]
